FAERS Safety Report 11595685 (Version 1)
Quarter: 2015Q4

REPORT INFORMATION
  Report Type: Spontaneous
  Country: US (occurrence: US)
  Receive Date: 20151006
  Receipt Date: 20151006
  Transmission Date: 20160304
  Serious: Yes (Other)
  Sender: FDA-Public Use
  Company Number: US-BAYER-2015-432459

PATIENT
  Age: 37 Year
  Sex: Female

DRUGS (1)
  1. SKYLA [Suspect]
     Active Substance: LEVONORGESTREL
     Indication: CONTRACEPTION
     Dosage: 14 MCG/24HR, CONT
     Route: 015
     Dates: start: 201506

REACTIONS (9)
  - Post procedural haemorrhage [None]
  - Burning sensation [None]
  - Emotional disorder [None]
  - Headache [None]
  - Procedural pain [None]
  - Depressed mood [None]
  - Mood altered [None]
  - Pruritus [None]
  - Abdominal pain lower [None]

NARRATIVE: CASE EVENT DATE: 201507
